FAERS Safety Report 13775694 (Version 1)
Quarter: 2017Q3

REPORT INFORMATION
  Report Type: Spontaneous
  Country: DE (occurrence: DE)
  Receive Date: 20170720
  Receipt Date: 20170720
  Transmission Date: 20171127
  Serious: Yes (Hospitalization, Other)
  Sender: FDA-Public Use
  Company Number: DE-B.I. PHARMACEUTICALS,INC./RIDGEFIELD-2017-BI-039767

PATIENT
  Age: 63 Year
  Sex: Female

DRUGS (2)
  1. PRADAXA [Suspect]
     Active Substance: DABIGATRAN ETEXILATE MESYLATE
     Indication: ATRIAL FIBRILLATION
  2. PRADAXA [Suspect]
     Active Substance: DABIGATRAN ETEXILATE MESYLATE
     Indication: CEREBROVASCULAR ACCIDENT PROPHYLAXIS
     Route: 065

REACTIONS (13)
  - Pelvic fracture [Unknown]
  - Ankle fracture [Unknown]
  - Anaesthesia [Unknown]
  - Foot fracture [Unknown]
  - Pelvic haemorrhage [Unknown]
  - Injury [Unknown]
  - Suicidal behaviour [Unknown]
  - Renal impairment [Unknown]
  - Haemoglobin decreased [Recovered/Resolved]
  - Femur fracture [Unknown]
  - Gastrointestinal hypomotility [Unknown]
  - Suicidal ideation [Unknown]
  - Spinal fracture [Unknown]
